FAERS Safety Report 23109887 (Version 2)
Quarter: 2024Q2

REPORT INFORMATION
  Report Type: Spontaneous
  Country: CN (occurrence: CN)
  Receive Date: 20231026
  Receipt Date: 20240618
  Transmission Date: 20240716
  Serious: Yes (Life-Threatening)
  Sender: FDA-Public Use
  Company Number: CN-ABBVIE-5461789

PATIENT
  Sex: Female

DRUGS (1)
  1. BOTOX [Suspect]
     Active Substance: ONABOTULINUMTOXINA
     Indication: Skin wrinkling
     Dosage: TIME INTERVAL: AS NECESSARY
     Route: 065
     Dates: start: 20230710, end: 20230710

REACTIONS (21)
  - General symptom [Unknown]
  - Menopause [Unknown]
  - Pain [Unknown]
  - Fatigue [Unknown]
  - Seborrhoeic dermatitis [Unknown]
  - Hair growth abnormal [Unknown]
  - Parosmia [Unknown]
  - Palpitations [Unknown]
  - Sebaceous gland disorder [Unknown]
  - Hypoaesthesia [Unknown]
  - Decreased appetite [Unknown]
  - Language disorder [Unknown]
  - Insomnia [Unknown]
  - Taste disorder [Unknown]
  - Nervous system disorder [Unknown]
  - Headache [Unknown]
  - Affective disorder [Unknown]
  - Muscular weakness [Unknown]
  - Mental disorder [Unknown]
  - Hyperkeratosis [Unknown]
  - Temperature regulation disorder [Unknown]

NARRATIVE: CASE EVENT DATE: 20230101
